FAERS Safety Report 19466432 (Version 1)
Quarter: 2021Q2

REPORT INFORMATION
  Report Type: Spontaneous
  Country: US (occurrence: US)
  Receive Date: 20210628
  Receipt Date: 20210628
  Transmission Date: 20210717
  Serious: Yes (Hospitalization, Other)
  Sender: FDA-Public Use
  Company Number: US-AUROBINDO-AUR-APL-2021-026177

PATIENT
  Age: 61 Year
  Sex: Male

DRUGS (5)
  1. VANCOMYCIN [Concomitant]
     Active Substance: VANCOMYCIN
     Indication: ENTEROBACTER INFECTION
     Dosage: UNK
     Route: 065
  2. MEROPENEM. [Concomitant]
     Active Substance: MEROPENEM
     Indication: ENTEROBACTER INFECTION
     Dosage: UNK
     Route: 065
  3. AZTREONAM. [Concomitant]
     Active Substance: AZTREONAM
     Indication: ENTEROBACTER INFECTION
     Dosage: UNK
     Route: 065
  4. AVIBACTAM;CEFTAROLINE [Concomitant]
     Indication: ENTEROBACTER INFECTION
     Dosage: UNK
     Route: 065
  5. POLYMYXIN B. [Suspect]
     Active Substance: POLYMYXIN B
     Indication: ENTEROBACTER INFECTION
     Dosage: UNK
     Route: 065

REACTIONS (2)
  - Respiratory distress [Unknown]
  - Neuromuscular blockade [Unknown]
